FAERS Safety Report 21093221 (Version 1)
Quarter: 2022Q3

REPORT INFORMATION
  Report Type: Spontaneous
  Country: US (occurrence: US)
  Receive Date: 20220718
  Receipt Date: 20220718
  Transmission Date: 20221027
  Serious: No
  Sender: FDA-Public Use
  Company Number: US-BRISTOL-MYERS SQUIBB COMPANY-2022-071896

PATIENT
  Age: 77 Year
  Sex: Female

DRUGS (1)
  1. POMALYST [Suspect]
     Active Substance: POMALIDOMIDE
     Indication: Product used for unknown indication
     Dosage: 1 DF : 1 CAPSULE ?1 CAPSULE BY MOUTH DAILY ON AN EMPTY STOMACH FOR 21 DAYS, FOLLOWED BY A 7 DAY REST
     Route: 048
     Dates: start: 20150604

REACTIONS (1)
  - Infected bite [Unknown]
